FAERS Safety Report 12161499 (Version 4)
Quarter: 2021Q2

REPORT INFORMATION
  Report Type: Spontaneous
  Country: NL (occurrence: NL)
  Receive Date: 20160309
  Receipt Date: 20210529
  Transmission Date: 20210716
  Serious: Yes (Other)
  Sender: FDA-Public Use
  Company Number: NL-AUROBINDO-AUR-APL-2016-02417

PATIENT
  Age: 52 Year
  Sex: Female

DRUGS (8)
  1. PANTOPRAZOLE 20MG [Suspect]
     Active Substance: PANTOPRAZOLE SODIUM
     Indication: DERMATITIS ATOPIC
     Dosage: 20 MILLIGRAM, DAILY
     Route: 065
  2. PREDNISOLONE. [Suspect]
     Active Substance: PREDNISOLONE
     Indication: DERMATITIS ATOPIC
     Dosage: UNK, 20?30 MG PER DAY IN A TAPERING DOSE
     Route: 048
  3. AZATHIOPRINE. [Interacting]
     Active Substance: AZATHIOPRINE
     Indication: DERMATITIS ATOPIC
     Dosage: 50 MILLIGRAM, DAILY
     Route: 065
  4. PREDNISOLONE. [Suspect]
     Active Substance: PREDNISOLONE
     Indication: DYSHIDROTIC ECZEMA
  5. PANTOPRAZOLE 20MG [Interacting]
     Active Substance: PANTOPRAZOLE SODIUM
     Indication: ABDOMINAL DISCOMFORT
  6. AZATHIOPRINE. [Interacting]
     Active Substance: AZATHIOPRINE
     Indication: DYSHIDROTIC ECZEMA
     Dosage: 100 MILLIGRAM, DAILY
     Route: 065
  7. AZATHIOPRINE. [Interacting]
     Active Substance: AZATHIOPRINE
     Dosage: 150 MILLIGRAM, DAILY
     Route: 065
  8. PANTOPRAZOLE 20MG [Interacting]
     Active Substance: PANTOPRAZOLE SODIUM
     Indication: DYSHIDROTIC ECZEMA

REACTIONS (4)
  - Off label use [Recovered/Resolved]
  - Gastrointestinal disorder [Recovered/Resolved]
  - Liver injury [Recovered/Resolved]
  - Drug interaction [Recovered/Resolved]
